FAERS Safety Report 5025979-9 (Version None)
Quarter: 2006Q2

REPORT INFORMATION
  Report Type: 
  Country: None (occurrence: None)
  Receive Date: 20060614
  Receipt Date: 20060403
  Transmission Date: 20061013
  Serious: Yes (Death)
  Sender: FDA-Public Use
  Company Number: GB-BRISTOL-MYERS SQUIBB COMPANY-13335021

PATIENT
  Age: 32 Year
  Sex: Female
  Weight: 101 kg

DRUGS (3)
  1. ABILIFY [Suspect]
     Indication: PSYCHOTIC DISORDER
     Route: 048
     Dates: start: 20051201, end: 20060301
  2. METYRAPONE [Concomitant]
  3. DEPAKOTE [Concomitant]

REACTIONS (1)
  - CARDIO-RESPIRATORY ARREST [None]
